FAERS Safety Report 16517370 (Version 1)
Quarter: 2019Q3

REPORT INFORMATION
  Report Type: Spontaneous
  Country: US (occurrence: US)
  Receive Date: 20190702
  Receipt Date: 20190702
  Transmission Date: 20191004
  Serious: Yes (Other)
  Sender: FDA-Public Use
  Company Number: US-PFIZER INC-2019267044

PATIENT
  Age: 67 Year
  Sex: Female

DRUGS (8)
  1. LIPOSOMAL DOXORUBICIN HCL [Concomitant]
     Active Substance: DOXORUBICIN HYDROCHLORIDE
     Indication: MALIGNANT PERITONEAL NEOPLASM
     Dosage: UNK
  2. CARBOPLATIN. [Suspect]
     Active Substance: CARBOPLATIN
     Indication: MALIGNANT PERITONEAL NEOPLASM
     Dosage: 80 MG, CYCLIC (11TH CUMULATIVE DOSE)
  3. ETOPOSIDE. [Concomitant]
     Active Substance: ETOPOSIDE
     Indication: MALIGNANT PERITONEAL NEOPLASM
     Dosage: UNK
  4. CARBOPLATIN. [Suspect]
     Active Substance: CARBOPLATIN
     Indication: ENDOMETRIAL CANCER
  5. PACLITAXEL. [Concomitant]
     Active Substance: PACLITAXEL
     Indication: MALIGNANT PERITONEAL NEOPLASM
     Dosage: 175 MG/M2, CYCLIC (FIVE CYCLES)
  6. LIPOSOMAL DOXORUBICIN HCL [Concomitant]
     Active Substance: DOXORUBICIN HYDROCHLORIDE
     Indication: ENDOMETRIAL CANCER
  7. PACLITAXEL. [Concomitant]
     Active Substance: PACLITAXEL
     Indication: ENDOMETRIAL CANCER
  8. ETOPOSIDE. [Concomitant]
     Active Substance: ETOPOSIDE
     Indication: ENDOMETRIAL CANCER

REACTIONS (5)
  - Flushing [Recovered/Resolved]
  - Dyspnoea [Recovered/Resolved]
  - Sinus tachycardia [Recovered/Resolved]
  - Hypertension [Recovered/Resolved]
  - Drug hypersensitivity [Recovered/Resolved]
